FAERS Safety Report 8890478 (Version 3)
Quarter: 2012Q4

REPORT INFORMATION
  Report Type: 
  Country: JP (occurrence: JP)
  Receive Date: 20121107
  Receipt Date: 20121122
  Transmission Date: 20130627
  Serious: Yes (Hospitalization, Other)
  Sender: FDA-Public Use
  Company Number: PHHY2012JP101079

PATIENT
  Age: 25 Year
  Sex: Male

DRUGS (1)
  1. LEPONEX / CLOZARIL [Suspect]
     Indication: SCHIZOPHRENIA
     Dosage: 175 mg
     Route: 048
     Dates: start: 20121012, end: 20121031

REACTIONS (6)
  - Pericarditis [Recovered/Resolved]
  - Pyrexia [Recovering/Resolving]
  - Pericardial effusion [Unknown]
  - Inflammation [Unknown]
  - Eosinophil count increased [Unknown]
  - Hypersensitivity [Unknown]
